FAERS Safety Report 10429441 (Version 1)
Quarter: 2014Q3

REPORT INFORMATION
  Report Type: Spontaneous
  Country: US (occurrence: None)
  Receive Date: 20140902
  Receipt Date: 20140902
  Transmission Date: 20150326
  Serious: Yes (Other)
  Sender: FDA-Public Use
  Company Number: None

PATIENT
  Age: 38 Year
  Sex: Female
  Weight: 127.01 kg

DRUGS (2)
  1. MELOXICAM 7.5 MG TAB [Suspect]
     Active Substance: MELOXICAM
     Indication: ARTHRITIS
     Dosage: ABOUT 3-4 MONTHS IN 2010 1 PILL TWICE DAILY TAKEN BY MOUTH
     Route: 048
  2. MELOXICAM 7.5 MG TAB [Suspect]
     Active Substance: MELOXICAM
     Indication: SCIATICA
     Dosage: ABOUT 3-4 MONTHS IN 2010 1 PILL TWICE DAILY TAKEN BY MOUTH
     Route: 048

REACTIONS (2)
  - Asthenia [None]
  - Arthropathy [None]

NARRATIVE: CASE EVENT DATE: 20100901
